FAERS Safety Report 4307106-6 (Version None)
Quarter: 2004Q1

REPORT INFORMATION
  Report Type: 
  Country: None (occurrence: None)
  Receive Date: 20040225
  Receipt Date: 20040206
  Transmission Date: 20041129
  Serious: Yes (Hospitalization, Other)
  Sender: FDA-Public Use
  Company Number: US_0402100796

PATIENT
  Sex: Male

DRUGS (1)
  1. HUMULIN L [Suspect]
     Dosage: 1 DSG FORM/IN THE MORNING
     Dates: start: 19940101

REACTIONS (7)
  - BLOOD GLUCOSE INCREASED [None]
  - EATING DISORDER [None]
  - MULTI-ORGAN FAILURE [None]
  - PANCREATIC DISORDER [None]
  - PERSONALITY CHANGE [None]
  - PHARMACEUTICAL PRODUCT COMPLAINT [None]
  - SPLEEN DISORDER [None]
